FAERS Safety Report 6438100-7 (Version None)
Quarter: 2009Q4

REPORT INFORMATION
  Report Type: 
  Country: None (occurrence: None)
  Receive Date: 20091112
  Receipt Date: 20091104
  Transmission Date: 20100525
  Serious: Yes (Hospitalization)
  Sender: FDA-Public Use
  Company Number: JP-BRISTOL-MYERS SQUIBB COMPANY-14848634

PATIENT
  Age: 14 Year
  Sex: Male

DRUGS (4)
  1. BRIPLATIN [Suspect]
     Indication: BONE SARCOMA
     Route: 041
  2. DOXORUBICIN HCL [Suspect]
     Indication: BONE SARCOMA
     Route: 042
  3. IFOSFAMIDE [Suspect]
     Indication: BONE SARCOMA
     Dosage: INJ.2,6 COURSES.
     Route: 042
  4. LASTET [Suspect]
     Indication: BONE SARCOMA
     Dosage: 2,6 COURSES

REACTIONS (1)
  - OESOPHAGEAL STENOSIS [None]
